FAERS Safety Report 8343819-7 (Version None)
Quarter: 2012Q1

REPORT INFORMATION
  Report Type: 
  Country: None (occurrence: None)
  Receive Date: 20120330
  Receipt Date: 20111029
  Transmission Date: 20120608
  Serious: Yes (Hospitalization, Disabling, Other)
  Sender: FDA-Public Use
  Company Number: PHEH2011US08213

PATIENT
  Age: 87 Year
  Sex: Male
  Weight: 77.1 kg

DRUGS (1)
  1. EXELON [Suspect]
     Dosage: 4.6 U, DAILY, TRANSDERMAL, 9.5 U, DAILY, TRANSDERMAL
     Route: 062

REACTIONS (2)
  - ATRIAL FIBRILLATION [None]
  - SICK SINUS SYNDROME [None]
